FAERS Safety Report 6835721-4 (Version None)
Quarter: 2010Q3

REPORT INFORMATION
  Report Type: 
  Country: None (occurrence: None)
  Receive Date: 20100713
  Receipt Date: 20100701
  Transmission Date: 20110219
  Serious: Yes (Other)
  Sender: FDA-Public Use
  Company Number: US-PFIZER INC-2010031148

PATIENT
  Sex: Female

DRUGS (1)
  1. TOVIAZ [Suspect]
     Indication: BLADDER DISORDER
     Dosage: 4 MG, 1X/DAY
     Dates: start: 20100101

REACTIONS (4)
  - DRUG INEFFECTIVE [None]
  - DRY MOUTH [None]
  - DYSPNOEA [None]
  - HAEMORRHAGE URINARY TRACT [None]
